FAERS Safety Report 4853803-3 (Version None)
Quarter: 2005Q4

REPORT INFORMATION
  Report Type: 
  Country: None (occurrence: None)
  Receive Date: 20051212
  Receipt Date: 20051201
  Transmission Date: 20060501
  Serious: Yes (Other)
  Sender: FDA-Public Use
  Company Number: 2005163745

PATIENT
  Age: 56 Year
  Sex: Male
  Weight: 81.6475 kg

DRUGS (6)
  1. ZOLOFT [Suspect]
     Indication: DEPRESSION
     Dates: start: 19950101
  2. TOPROL (METOPROLOL) [Concomitant]
  3. ZOCOR [Concomitant]
  4. ALTACE [Concomitant]
  5. PLAVIX [Concomitant]
  6. OTHER ANTIPRURITICS (OTHER ANTIPRURITICS) [Concomitant]

REACTIONS (2)
  - CHEST PAIN [None]
  - STENT PLACEMENT [None]
